FAERS Safety Report 6889281-2 (Version None)
Quarter: 2010Q3

REPORT INFORMATION
  Report Type: 
  Country: None (occurrence: None)
  Receive Date: 20100730
  Receipt Date: 20080122
  Transmission Date: 20110219
  Serious: No
  Sender: FDA-Public Use
  Company Number: US-PFIZER INC-2008006362

PATIENT
  Sex: Male
  Weight: 84.09 kg

DRUGS (1)
  1. LIPITOR [Suspect]
     Indication: CORONARY ARTERY STENOSIS
     Dates: start: 20060101

REACTIONS (1)
  - LIBIDO DECREASED [None]
